FAERS Safety Report 5299129-8 (Version None)
Quarter: 2007Q2

REPORT INFORMATION
  Report Type: 
  Country: None (occurrence: None)
  Receive Date: 20070417
  Receipt Date: 20070409
  Transmission Date: 20071010
  Serious: Yes (Hospitalization)
  Sender: FDA-Public Use
  Company Number: US-BAYER-200711156BWH

PATIENT
  Age: 58 Year
  Sex: Male
  Weight: 69 kg

DRUGS (12)
  1. CIPROFLOXACIN HCL [Suspect]
     Indication: PROPHYLAXIS
     Dosage: TOTAL DAILY DOSE: 250 MG  UNIT DOSE: 250 MG
     Route: 048
  2. ACETYLSALICYLIC ACID SRT [Suspect]
     Indication: PROPHYLAXIS
     Dosage: TOTAL DAILY DOSE: 81 MG  UNIT DOSE: 81 MG
     Route: 048
     Dates: start: 19860101, end: 20030810
  3. IRINOTECAN HCL [Suspect]
     Indication: COLORECTAL CANCER METASTATIC
     Route: 042
     Dates: start: 20030811, end: 20030811
  4. IRINOTECAN HCL [Suspect]
     Dates: start: 20030818, end: 20030818
  5. FLUOROURACIL [Suspect]
     Indication: COLORECTAL CANCER METASTATIC
     Route: 042
     Dates: start: 20030811, end: 20030811
  6. FLUOROURACIL [Suspect]
     Dates: start: 20030818, end: 20030818
  7. XANAX [Suspect]
     Indication: SLEEP DISORDER
     Dosage: TOTAL DAILY DOSE: 0.5 MG
     Route: 048
  8. LEUCOVORIN CALCIUM [Suspect]
     Indication: COLORECTAL CANCER METASTATIC
     Route: 042
     Dates: start: 20030811, end: 20030818
  9. TOPROL-XL [Suspect]
     Indication: HYPERTENSION
     Dosage: TOTAL DAILY DOSE: 50 MG
     Route: 048
  10. ZETIA [Suspect]
     Indication: HYPERCHOLESTEROLAEMIA
     Dosage: TOTAL DAILY DOSE: 10 MG
     Route: 048
  11. PROTONIX [Suspect]
     Indication: DRUG USE FOR UNKNOWN INDICATION
     Dosage: TOTAL DAILY DOSE: 40 MG
     Route: 048
  12. AMIODARONE HCL [Suspect]
     Indication: DRUG USE FOR UNKNOWN INDICATION
     Dosage: TOTAL DAILY DOSE: 400 MG
     Route: 048

REACTIONS (4)
  - ABDOMINAL PAIN [None]
  - ANGINA PECTORIS [None]
  - CONSTIPATION [None]
  - INTESTINAL OBSTRUCTION [None]
